FAERS Safety Report 17441916 (Version 1)
Quarter: 2020Q1

REPORT INFORMATION
  Report Type: Spontaneous
  Country: DE (occurrence: DE)
  Receive Date: 20200220
  Receipt Date: 20200220
  Transmission Date: 20200409
  Serious: Yes (Other)
  Sender: FDA-Public Use
  Company Number: DE-SHIRE-DE201943414

PATIENT

DRUGS (5)
  1. VEYVONDI [Suspect]
     Active Substance: VONICOG ALFA
     Indication: PROPHYLAXIS
     Dosage: 3000 INTERNATIONAL UNIT, 3X A WEEK , 40 IU / KG DAILY DOSE
     Route: 065
  2. VEYVONDI [Suspect]
     Active Substance: VONICOG ALFA
     Dosage: 3250 INTERNATIONAL UNIT, 1X/WEEK
     Route: 042
  3. HAEMATE [FACTOR VIII (ANTIHAEMOPHILIC FACTOR);VON WILLEBRAND FACTOR] [Concomitant]
     Indication: PRODUCT USED FOR UNKNOWN INDICATION
  4. RITUXIMAB. [Concomitant]
     Active Substance: RITUXIMAB
     Indication: CREST SYNDROME
     Dosage: 375 MILLIGRAM/SQ. METER, UNKNOWN
     Route: 042
  5. VEYVONDI [Suspect]
     Active Substance: VONICOG ALFA
     Dosage: 2600 INTERNATIONAL UNIT, 2X A WEEK
     Route: 042
     Dates: end: 201910

REACTIONS (2)
  - Off label use [Unknown]
  - Haemorrhage [Unknown]
